FAERS Safety Report 17680927 (Version 7)
Quarter: 2021Q2

REPORT INFORMATION
  Report Type: Report from Study
  Country: US (occurrence: US)
  Receive Date: 20200417
  Receipt Date: 20210416
  Transmission Date: 20210716
  Serious: Yes (Other)
  Sender: FDA-Public Use
  Company Number: NVSC2020US103457

PATIENT
  Sex: Female

DRUGS (4)
  1. COSENTYX [Suspect]
     Active Substance: SECUKINUMAB
     Dosage: UNK UNK, Q4W
     Route: 065
  2. COSENTYX [Suspect]
     Active Substance: SECUKINUMAB
     Indication: ANKYLOSING SPONDYLITIS
     Dosage: UNK UNK, QW
     Route: 058
  3. COSENTYX [Suspect]
     Active Substance: SECUKINUMAB
     Route: 058
  4. COSENTYX [Suspect]
     Active Substance: SECUKINUMAB
     Dosage: UNK
     Route: 058

REACTIONS (12)
  - Skin discolouration [Unknown]
  - Candida infection [Recovering/Resolving]
  - Injection site haemorrhage [Recovered/Resolved]
  - Insomnia [Unknown]
  - Drug ineffective [Recovered/Resolved]
  - Injection site mass [Recovered/Resolved]
  - Mouth ulceration [Recovered/Resolved]
  - Arthralgia [Unknown]
  - Skin cancer [Recovered/Resolved]
  - Injection site pain [Recovered/Resolved]
  - Joint stiffness [Unknown]
  - Pharyngeal ulceration [Recovered/Resolved]
